FAERS Safety Report 23795595 (Version 1)
Quarter: 2024Q2

REPORT INFORMATION
  Report Type: Spontaneous
  Country: US (occurrence: US)
  Receive Date: 20240429
  Receipt Date: 20240429
  Transmission Date: 20240715
  Serious: No
  Sender: FDA-Public Use
  Company Number: US-MYLANLABS-2024M1035158

PATIENT
  Age: 52 Year
  Sex: Female

DRUGS (1)
  1. GABAPENTIN [Suspect]
     Active Substance: GABAPENTIN
     Indication: Neuropathy peripheral
     Dosage: 100 MILLIGRAM
     Route: 065
     Dates: start: 202401

REACTIONS (2)
  - Fluid retention [Unknown]
  - Off label use [Unknown]

NARRATIVE: CASE EVENT DATE: 20240101
